FAERS Safety Report 4360867-2 (Version None)
Quarter: 2004Q2

REPORT INFORMATION
  Report Type: 
  Country: None (occurrence: None)
  Receive Date: 20040517
  Receipt Date: 20040507
  Transmission Date: 20050107
  Serious: Yes (Death, Life-Threatening)
  Sender: FDA-Public Use
  Company Number: 2004SE02609

PATIENT
  Age: 67 Year
  Sex: Female

DRUGS (4)
  1. SEROQUEL [Suspect]
     Indication: MAJOR DEPRESSION
     Dosage: 75 MG DAILY PO
     Route: 048
     Dates: start: 20040213, end: 20040213
  2. ZYPREXA [Suspect]
     Indication: MAJOR DEPRESSION
     Dosage: 5 MG DAILY PO
     Route: 048
     Dates: start: 20040127, end: 20040205
  3. ZYPREXA [Suspect]
     Indication: MAJOR DEPRESSION
     Dosage: 7.5 MG DAILY PO
     Route: 048
     Dates: start: 20040205, end: 20040209
  4. FLUANXOL [Concomitant]

REACTIONS (3)
  - BLOOD CREATININE INCREASED [None]
  - DYSARTHRIA [None]
  - NEUROLEPTIC MALIGNANT SYNDROME [None]
